FAERS Safety Report 20994348 (Version 3)
Quarter: 2022Q4

REPORT INFORMATION
  Report Type: Spontaneous
  Country: IN (occurrence: IN)
  Receive Date: 20220622
  Receipt Date: 20221222
  Transmission Date: 20230113
  Serious: Yes (Other)
  Sender: FDA-Public Use
  Company Number: IN-PFIZER INC-2020498078

PATIENT
  Age: 61 Year
  Sex: Male

DRUGS (5)
  1. SUTENT [Suspect]
     Active Substance: SUNITINIB MALATE
     Indication: Gastrointestinal stromal tumour
     Dosage: 37.5 MG, 1X/DAY
     Route: 048
     Dates: start: 20201212
  2. SUTENT [Suspect]
     Active Substance: SUNITINIB MALATE
     Dosage: 37.5 MG, CYCLIC
     Route: 048
     Dates: end: 20210810
  3. SUTENT [Suspect]
     Active Substance: SUNITINIB MALATE
     Dosage: 37.5 MG, CYCLIC
     Route: 048
  4. SUTENT [Suspect]
     Active Substance: SUNITINIB MALATE
     Dosage: 6 DAYS A WEEK FOR 4 WEEKS THEN 2 WEEK OFF
  5. IMATINIB [Suspect]
     Active Substance: IMATINIB
     Dosage: 400 MG, 2X/DAY (1 TAB MORNING AND 1 TAB EVENING DAILY)

REACTIONS (19)
  - Hypothyroidism [Not Recovered/Not Resolved]
  - Red blood cell sedimentation rate increased [Unknown]
  - Mouth ulceration [Not Recovered/Not Resolved]
  - Diarrhoea [Not Recovered/Not Resolved]
  - Weight decreased [Unknown]
  - Blood pressure increased [Unknown]
  - Skin toxicity [Unknown]
  - Palmar-plantar erythrodysaesthesia syndrome [Recovered/Resolved]
  - Constipation [Unknown]
  - Neoplasm progression [Unknown]
  - Off label use [Unknown]
  - Product use issue [Unknown]
  - Haemoglobin abnormal [Unknown]
  - Neoplasm recurrence [Unknown]
  - Blood urea increased [Unknown]
  - Aspartate aminotransferase increased [Unknown]
  - Abdominal discomfort [Unknown]
  - Flatulence [Unknown]
  - Blood creatinine increased [Unknown]
